FAERS Safety Report 6803388-7 (Version None)
Quarter: 2010Q2

REPORT INFORMATION
  Report Type: 
  Country: None (occurrence: None)
  Receive Date: 20100628
  Receipt Date: 20100622
  Transmission Date: 20101027
  Serious: Yes (Life-Threatening, Hospitalization, Other)
  Sender: FDA-Public Use
  Company Number: CA-CELGENEUS-028-21880-10062315

PATIENT
  Sex: Male
  Weight: 70 kg

DRUGS (7)
  1. REVLIMID [Suspect]
     Indication: MULTIPLE MYELOMA
     Route: 048
     Dates: start: 20100518
  2. REVLIMID [Suspect]
     Route: 048
     Dates: start: 20100210
  3. DEXAMETHASONE [Suspect]
     Indication: MULTIPLE MYELOMA
     Route: 065
     Dates: start: 20100518
  4. DEXAMETHASONE [Suspect]
     Route: 065
     Dates: start: 20100210
  5. SIMVASTATIN [Concomitant]
     Indication: DRUG USE FOR UNKNOWN INDICATION
     Route: 065
     Dates: start: 20090902
  6. METOPROLOL [Concomitant]
     Indication: DRUG USE FOR UNKNOWN INDICATION
     Route: 065
     Dates: start: 20090902
  7. BUDESONIDE [Concomitant]
     Indication: DRUG USE FOR UNKNOWN INDICATION
     Dosage: 2 PUFFS
     Route: 065
     Dates: start: 20100511

REACTIONS (2)
  - HAEMORRHAGE [None]
  - THROMBOSIS [None]
